FAERS Safety Report 4394266-4 (Version None)
Quarter: 2004Q3

REPORT INFORMATION
  Report Type: 
  Country: None (occurrence: None)
  Receive Date: 20040707
  Receipt Date: 20040628
  Transmission Date: 20050211
  Serious: Yes (Death)
  Sender: FDA-Public Use
  Company Number: US-JNJFOC-20040607763

PATIENT
  Age: 39 Year
  Sex: Female

DRUGS (4)
  1. TOPAMAX [Suspect]
     Indication: EPILEPSY
  2. METHADONE HCL [Suspect]
  3. PAXIL [Suspect]
     Indication: DEPRESSION
  4. KLONOPIN [Suspect]
     Indication: CONVULSION

REACTIONS (5)
  - AGGRESSION [None]
  - CONVULSION [None]
  - CRUSH INJURY [None]
  - FALL [None]
  - ROAD TRAFFIC ACCIDENT [None]
